FAERS Safety Report 12663060 (Version 1)
Quarter: 2016Q3

REPORT INFORMATION
  Report Type: Spontaneous
  Country: US (occurrence: None)
  Receive Date: 20160817
  Receipt Date: 20160817
  Transmission Date: 20161109
  Serious: Yes (Other)
  Sender: FDA-Public Use
  Company Number: None

PATIENT
  Age: 73 Year
  Sex: Male
  Weight: 92.53 kg

DRUGS (12)
  1. FLUTICASONE [Concomitant]
     Active Substance: FLUTICASONE\FLUTICASONE PROPIONATE
  2. HARVONI [Suspect]
     Active Substance: LEDIPASVIR\SOFOSBUVIR
     Indication: DRUG THERAPY
     Route: 048
     Dates: start: 20160509, end: 20160807
  3. ATENOLOL. [Concomitant]
     Active Substance: ATENOLOL
  4. RANOLAZINE [Concomitant]
     Active Substance: RANOLAZINE
  5. PRAVASTATIN. [Concomitant]
     Active Substance: PRAVASTATIN
  6. LISINOPRIL. [Concomitant]
     Active Substance: LISINOPRIL
  7. MULTIVITAMIN [Concomitant]
     Active Substance: VITAMINS
  8. LORATADINE. [Concomitant]
     Active Substance: LORATADINE
  9. APIXABAN [Concomitant]
     Active Substance: APIXABAN
  10. GABAPENTIN. [Concomitant]
     Active Substance: GABAPENTIN
  11. SERTRALINE [Concomitant]
     Active Substance: SERTRALINE HYDROCHLORIDE
  12. PANTOPRAZOLE [Concomitant]
     Active Substance: PANTOPRAZOLE SODIUM

REACTIONS (1)
  - Hallucination, visual [None]

NARRATIVE: CASE EVENT DATE: 20160709
